FAERS Safety Report 18171756 (Version 10)
Quarter: 2022Q3

REPORT INFORMATION
  Report Type: Report from Study
  Country: US (occurrence: US)
  Receive Date: 20200819
  Receipt Date: 20220929
  Transmission Date: 20221027
  Serious: Yes (Hospitalization, Other)
  Sender: FDA-Public Use
  Company Number: US-AEGERION PHARMACEUTICAL, INC-AEGR004872

PATIENT
  Sex: Female
  Weight: 60.771 kg

DRUGS (8)
  1. JUXTAPID [Suspect]
     Active Substance: LOMITAPIDE MESYLATE
     Indication: Type IIa hyperlipidaemia
     Dosage: 30 MILLIGRAM, QD AT BEDTIME
     Route: 048
     Dates: start: 20131011
  2. JUXTAPID [Suspect]
     Active Substance: LOMITAPIDE MESYLATE
     Indication: Type IIa hyperlipidaemia
  3. LISINOPRIL [Concomitant]
     Active Substance: LISINOPRIL
     Indication: Product used for unknown indication
  4. FISH OIL;VITAMIN D NOS [Concomitant]
     Indication: Product used for unknown indication
  5. ASPIRIN [Concomitant]
     Active Substance: ASPIRIN
     Indication: Product used for unknown indication
  6. VITAMIN E [Concomitant]
     Active Substance: .ALPHA.-TOCOPHEROL
     Indication: Product used for unknown indication
  7. HYDROCHLOROTHIAZIDE [Concomitant]
     Active Substance: HYDROCHLOROTHIAZIDE
     Indication: Product used for unknown indication
  8. BRIMONIDINE TARTRATE\DORZOLAMIDE HYDROCHLORIDE\TIMOLOL MALEATE [Concomitant]
     Active Substance: BRIMONIDINE TARTRATE\DORZOLAMIDE HYDROCHLORIDE\TIMOLOL MALEATE
     Indication: Product used for unknown indication

REACTIONS (16)
  - Eye operation [Unknown]
  - Glaucoma [Recovering/Resolving]
  - Ocular vascular disorder [Unknown]
  - Depression [Unknown]
  - Stress [Unknown]
  - Sleep disorder [Unknown]
  - Decreased appetite [Recovering/Resolving]
  - Hypersensitivity [Unknown]
  - Hypertension [Unknown]
  - Lacrimation increased [Unknown]
  - Abnormal sensation in eye [Unknown]
  - Asthenia [Unknown]
  - Malaise [Unknown]
  - Alopecia [Recovering/Resolving]
  - Weight decreased [Unknown]
  - Diet noncompliance [Unknown]

NARRATIVE: CASE EVENT DATE: 20200101
